FAERS Safety Report 11946163 (Version 3)
Quarter: 2016Q2

REPORT INFORMATION
  Report Type: Report from Study
  Country: US (occurrence: US)
  Receive Date: 20160125
  Receipt Date: 20160421
  Transmission Date: 20160815
  Serious: No
  Sender: FDA-Public Use
  Company Number: US-AMGEN-USASL2016000373

PATIENT
  Age: 64 Year
  Sex: Female
  Weight: 56.24 kg

DRUGS (25)
  1. COUMADIN [Concomitant]
     Active Substance: WARFARIN SODIUM
     Dosage: UNK
  2. SINGULAIR [Concomitant]
     Active Substance: MONTELUKAST SODIUM
     Dosage: 10 MG, QD
  3. TRAMADOL. [Concomitant]
     Active Substance: TRAMADOL
     Dosage: UNK UNK, AS NECESSARY
  4. LOVENOX [Concomitant]
     Active Substance: ENOXAPARIN SODIUM
     Dosage: UNK
  5. CRESTOR [Concomitant]
     Active Substance: ROSUVASTATIN CALCIUM
     Dosage: UNK
  6. DIOVAN [Concomitant]
     Active Substance: VALSARTAN
     Dosage: 320 MG, QD
  7. ATROVENT [Concomitant]
     Active Substance: IPRATROPIUM BROMIDE
     Dosage: UNK UNK, QD
  8. ASPIRIN                            /00002701/ [Concomitant]
     Active Substance: ASPIRIN
     Dosage: 81 MG, QD
  9. LIPITOR [Concomitant]
     Active Substance: ATORVASTATIN CALCIUM
     Dosage: UNK
  10. SYMBICORT [Concomitant]
     Active Substance: BUDESONIDE\FORMOTEROL FUMARATE DIHYDRATE
     Dosage: UNK UNK, QD
  11. FOLATE [Concomitant]
     Active Substance: FOLATE SODIUM
     Dosage: 1 MG, QD
  12. NIASPAN [Concomitant]
     Active Substance: NIACIN
     Dosage: 500 MG, QD
  13. CLARINEX                           /01202601/ [Concomitant]
     Active Substance: LORATADINE\PSEUDOEPHEDRINE SULFATE
     Dosage: UNK UNK, AS NECESSARY
  14. ALBUTEROL                          /00139501/ [Concomitant]
     Active Substance: ALBUTEROL
  15. REPATHA [Suspect]
     Active Substance: EVOLOCUMAB
     Indication: HYPERCHOLESTEROLAEMIA
     Dosage: 140 MG/ML, Q2WK
     Route: 065
     Dates: start: 20151116
  16. LYRICA [Concomitant]
     Active Substance: PREGABALIN
     Dosage: 50 MG, QD
  17. ZESTRIL [Concomitant]
     Active Substance: LISINOPRIL
     Dosage: 20 MG, UNK
  18. CARTIA                             /00002701/ [Concomitant]
     Active Substance: ASPIRIN
     Dosage: 240 MG, QD
  19. SYNTHROID [Concomitant]
     Active Substance: LEVOTHYROXINE SODIUM
     Dosage: 88 MUG, QD
  20. CANASA [Concomitant]
     Active Substance: MESALAMINE
     Dosage: 1000 MG, QD
  21. CARTIA XT [Concomitant]
     Active Substance: DILTIAZEM HYDROCHLORIDE
     Dosage: 240 MG, QD
  22. PREVACID [Concomitant]
     Active Substance: LANSOPRAZOLE
     Dosage: 30 MG, QD
  23. METANX [Concomitant]
     Active Substance: LEVOMEFOLATE CALCIUM\METHYLCOBALAMIN\PYRIDOXAL PHOSPHATE ANHYDROUS
     Dosage: 10 MG, QD
  24. REPATHA [Suspect]
     Active Substance: EVOLOCUMAB
     Dosage: UNK
     Route: 065
  25. LEXAPRO [Concomitant]
     Active Substance: ESCITALOPRAM OXALATE
     Dosage: 20 MG, QOD/ ALTERNATING WITH 10 MG, QD

REACTIONS (3)
  - Device failure [Unknown]
  - Injection site pain [Unknown]
  - Injection site bruising [Unknown]
